FAERS Safety Report 16813668 (Version 2)
Quarter: 2019Q3

REPORT INFORMATION
  Report Type: Spontaneous
  Country: JP (occurrence: JP)
  Receive Date: 20190917
  Receipt Date: 20190924
  Transmission Date: 20191005
  Serious: Yes (Congenital Anomaly)
  Sender: FDA-Public Use
  Company Number: JP-ROCHE-2406572

PATIENT
  Sex: Male

DRUGS (1)
  1. HERCEPTIN [Suspect]
     Active Substance: TRASTUZUMAB
     Indication: BREAST CANCER
     Dosage: DOSAGE IS UNCERTAIN.
     Route: 064

REACTIONS (5)
  - Anal atresia [Unknown]
  - Congenital muscle absence [Unknown]
  - Respiratory disorder neonatal [Unknown]
  - Cryptorchism [Unknown]
  - Maternal drugs affecting foetus [Unknown]
